FAERS Safety Report 9178275 (Version 2)
Quarter: 2013Q2

REPORT INFORMATION
  Report Type: Spontaneous
  Country: JP (occurrence: JP)
  Receive Date: 20130321
  Receipt Date: 20130403
  Transmission Date: 20140414
  Serious: Yes (Other)
  Sender: FDA-Public Use
  Company Number: JP-PFIZER INC-2013091839

PATIENT
  Age: 90 Year
  Sex: Female

DRUGS (1)
  1. CELECOX [Suspect]
     Indication: CHONDROCALCINOSIS PYROPHOSPHATE
     Route: 048

REACTIONS (2)
  - Drug ineffective for unapproved indication [Unknown]
  - Off label use [Recovered/Resolved]
